FAERS Safety Report 9689272 (Version 2)
Quarter: 2014Q1

REPORT INFORMATION
  Report Type: Report from Study
  Country: AZ (occurrence: AZ)
  Receive Date: 20131114
  Receipt Date: 20140106
  Transmission Date: 20141002
  Serious: Yes (Death, Other)
  Sender: FDA-Public Use
  Company Number: PHHY2013AZ129359

PATIENT
  Sex: Female

DRUGS (1)
  1. GLIVEC [Suspect]
     Indication: CHRONIC MYELOID LEUKAEMIA
     Dosage: 800 MG, ONCE/SINGLE
     Route: 048

REACTIONS (9)
  - Coma [Fatal]
  - Cerebrovascular accident [Fatal]
  - Loss of consciousness [Fatal]
  - Cholelithiasis [Unknown]
  - Nephrolithiasis [Unknown]
  - Hypertension [Unknown]
  - Anaemia [Unknown]
  - Full blood count abnormal [Unknown]
  - Thrombocytosis [Unknown]
